FAERS Safety Report 5738566-1 (Version None)
Quarter: 2008Q2

REPORT INFORMATION
  Report Type: 
  Country: None (occurrence: None)
  Receive Date: 20080514
  Receipt Date: 20080514
  Transmission Date: 20081010
  Serious: Yes (Death)
  Sender: FDA-Public Use
  Company Number: None

PATIENT
  Sex: Female

DRUGS (1)
  1. DIGITEK 0.125MG ACTAVIS [Suspect]
     Dosage: ONE TABLET DAILY PO
     Route: 048
     Dates: start: 20071219, end: 20080411

REACTIONS (1)
  - OVERDOSE [None]
